FAERS Safety Report 5166049-9 (Version None)
Quarter: 2006Q4

REPORT INFORMATION
  Report Type: 
  Country: None (occurrence: None)
  Receive Date: 20061128
  Receipt Date: 20060330
  Transmission Date: 20070319
  Serious: Yes (Other)
  Sender: FDA-Public Use
  Company Number: 2294

PATIENT
  Age: 22 Year
  Sex: Female

DRUGS (1)
  1. DERCUTANE (ISOTRETINOIN), CAPSULES, 20 MG [Suspect]
     Dosage: 20 MG, QD, PO
     Route: 048
     Dates: start: 20060103, end: 20060301

REACTIONS (4)
  - CAESAREAN SECTION [None]
  - COMPLICATION OF PREGNANCY [None]
  - DRUG EXPOSURE DURING PREGNANCY [None]
  - PREGNANCY [None]
